FAERS Safety Report 9804016 (Version 1)
Quarter: 2014Q1

REPORT INFORMATION
  Report Type: Spontaneous
  Country: JP (occurrence: JP)
  Receive Date: 20140108
  Receipt Date: 20140108
  Transmission Date: 20141002
  Serious: Yes (Other)
  Sender: FDA-Public Use
  Company Number: JP-PFIZER INC-2014004677

PATIENT
  Age: 64 Year
  Sex: Male

DRUGS (6)
  1. SOLANAX [Suspect]
     Dosage: 0.2 MG, EVERY 5 TO 10 DAYS
     Route: 048
     Dates: start: 201306, end: 201309
  2. SOLANAX [Suspect]
     Dosage: 0.4 MG, 3X/DAY (IN THE MORNING, DAYTIME, AND EVENING)
     Route: 048
     Dates: start: 201310, end: 2013
  3. SOLANAX [Suspect]
     Dosage: 0.8 MG, DAILY
     Route: 048
     Dates: start: 2013, end: 2013
  4. SOLANAX [Suspect]
     Dosage: 0.6 MG, DAILY
     Route: 048
     Dates: start: 2013, end: 2013
  5. SOLANAX [Suspect]
     Dosage: 0.3 MG, DAILY (IN THE MORNING AND EVENING, BUT THE DOSES AT ONE TIME WERE UNKNOWN)
     Route: 048
     Dates: start: 201312
  6. SOLANAX [Suspect]
     Dosage: UNK
     Route: 048

REACTIONS (10)
  - Suicidal ideation [Unknown]
  - Drug withdrawal syndrome [Unknown]
  - Headache [Unknown]
  - Dry eye [Unknown]
  - Abdominal pain [Unknown]
  - Asthenia [Unknown]
  - Dizziness [Unknown]
  - Abasia [Unknown]
  - Insomnia [Unknown]
  - Decreased appetite [Unknown]
